FAERS Safety Report 12184538 (Version 2)
Quarter: 2016Q2

REPORT INFORMATION
  Report Type: Report from Study
  Country: BE (occurrence: BE)
  Receive Date: 20160316
  Receipt Date: 20160408
  Transmission Date: 20160815
  Serious: Yes (Death, Hospitalization)
  Sender: FDA-Public Use
  Company Number: BE-ABBVIE-15P-013-1487437-00

PATIENT
  Age: 81 Year
  Sex: Male

DRUGS (11)
  1. DUODOPA [Suspect]
     Active Substance: CARBIDOPA\LEVODOPA
     Dosage: AM=6.4ML; CD=4ML/HR DURING 16HRS;ED=2.5ML
     Route: 050
     Dates: start: 20160127
  2. ALDACTONE [Concomitant]
     Active Substance: SPIRONOLACTONE
     Indication: PRODUCT USED FOR UNKNOWN INDICATION
  3. PROLOPA HBS [Concomitant]
     Active Substance: BENSERAZIDE\LEVODOPA
     Indication: PRODUCT USED FOR UNKNOWN INDICATION
     Dosage: FORM STRENGTH: 100MG/25MG
  4. TRITACE [Concomitant]
     Active Substance: RAMIPRIL
     Indication: PRODUCT USED FOR UNKNOWN INDICATION
  5. DUODOPA [Suspect]
     Active Substance: CARBIDOPA\LEVODOPA
     Indication: PARKINSON^S DISEASE
     Dosage: AM=6ML; CD=2ML/HR DURING 16HRS; ED=1ML
     Route: 050
     Dates: start: 20110421, end: 20110523
  6. DUODOPA [Suspect]
     Active Substance: CARBIDOPA\LEVODOPA
     Dosage: AM=6.5ML; CD=4.4ML/HR DURING 16HRS; ED=2.5ML
     Route: 050
     Dates: start: 20140513, end: 20160127
  7. DUODOPA [Suspect]
     Active Substance: CARBIDOPA\LEVODOPA
     Dosage: DOSES CONTINUOUSLY MONITORED AND ADAPTED
     Route: 050
     Dates: start: 20110523, end: 20140513
  8. STALEVO [Concomitant]
     Active Substance: CARBIDOPA\ENTACAPONE\LEVODOPA
     Indication: PRODUCT USED FOR UNKNOWN INDICATION
     Dosage: FORM STRENGTH= 150MG/ 37.5MG/ 200MG
  9. STALEVO [Concomitant]
     Active Substance: CARBIDOPA\ENTACAPONE\LEVODOPA
     Dosage: FORM STRENGTH= 150MG/ 37.5MG/ 200MG
  10. BURINEX [Concomitant]
     Active Substance: BUMETANIDE
     Indication: PRODUCT USED FOR UNKNOWN INDICATION
  11. RIVOTRIL [Concomitant]
     Active Substance: CLONAZEPAM
     Indication: PRODUCT USED FOR UNKNOWN INDICATION

REACTIONS (16)
  - Dyspnoea exertional [Unknown]
  - On and off phenomenon [Unknown]
  - Cardiac failure [Unknown]
  - Pancreatic carcinoma [Fatal]
  - Musculoskeletal disorder [Unknown]
  - Pneumonia aspiration [Unknown]
  - Bradycardia [Unknown]
  - Gait disturbance [Unknown]
  - Dyskinesia [Unknown]
  - Mitral valve incompetence [Unknown]
  - Cachexia [Unknown]
  - Endocarditis [Unknown]
  - Weight decreased [Unknown]
  - Vocal cord paresis [Unknown]
  - Anaemia [Unknown]
  - Mitral valve incompetence [Unknown]

NARRATIVE: CASE EVENT DATE: 2012
